FAERS Safety Report 9814694 (Version 1)
Quarter: 2014Q1

REPORT INFORMATION
  Report Type: Spontaneous
  Country: US (occurrence: US)
  Receive Date: 20140113
  Receipt Date: 20140113
  Transmission Date: 20141002
  Serious: Yes (Hospitalization)
  Sender: FDA-Public Use
  Company Number: US-SANOFI-AVENTIS-2012SA093963

PATIENT
  Age: 50 Year
  Sex: Female
  Weight: 60.7 kg

DRUGS (11)
  1. TAXOTERE [Suspect]
     Indication: PRODUCT USED FOR UNKNOWN INDICATION
     Route: 042
     Dates: start: 20120301, end: 20120503
  2. ADDERALL [Concomitant]
     Dates: start: 20101201
  3. PAXIL [Concomitant]
     Dates: start: 201101
  4. LORTAB [Concomitant]
     Dosage: DAILY DOSE: 30/200MG
  5. ALPRAZOLAM [Concomitant]
  6. VALIUM [Concomitant]
  7. ZOFRAN [Concomitant]
  8. PHENERGAN [Concomitant]
  9. DEXAMETHASONE [Concomitant]
  10. TRASTUZUMAB [Concomitant]
     Route: 042
     Dates: start: 20111229
  11. BLINDED THERAPY [Concomitant]
     Route: 041
     Dates: start: 20111229

REACTIONS (1)
  - Sepsis [Recovered/Resolved]
